FAERS Safety Report 8217582-4 (Version None)
Quarter: 2012Q1

REPORT INFORMATION
  Report Type: 
  Country: None (occurrence: None)
  Receive Date: 20120319
  Receipt Date: 20120319
  Transmission Date: 20120608
  Serious: Yes (Other)
  Sender: FDA-Public Use
  Company Number: None

PATIENT
  Age: 5 Year
  Weight: 20.865 kg

DRUGS (2)
  1. SINGULAIR [Suspect]
     Indication: MULTIPLE ALLERGIES
     Dosage: 4MG
     Route: 048
     Dates: start: 20120309, end: 20120313
  2. SINGULAIR [Suspect]
     Indication: ASTHMA
     Dosage: 4MG
     Route: 048
     Dates: start: 20120309, end: 20120313

REACTIONS (8)
  - IRRITABILITY [None]
  - HOMICIDAL IDEATION [None]
  - CONFUSIONAL STATE [None]
  - THINKING ABNORMAL [None]
  - ANXIETY [None]
  - FEELING GUILTY [None]
  - CRYING [None]
  - NIGHTMARE [None]
